FAERS Safety Report 9580148 (Version 1)
Quarter: 2013Q3

REPORT INFORMATION
  Report Type: Spontaneous
  Country: US (occurrence: None)
  Receive Date: 20130916
  Receipt Date: 20130916
  Transmission Date: 20140515
  Serious: Yes (Other)
  Sender: FDA-Public Use
  Company Number: JPI-P-030313

PATIENT
  Age: 48 Year
  Sex: Male

DRUGS (1)
  1. XYREM [Suspect]
     Indication: SLEEP DISORDER
     Dosage: 9 GM (4.5 GM, 2 IN 1 D), ORAL
     Route: 048
     Dates: start: 20090211

REACTIONS (1)
  - Sleep apnoea syndrome [None]
